APPROVED DRUG PRODUCT: BUPRENORPHINE HYDROCHLORIDE
Active Ingredient: BUPRENORPHINE HYDROCHLORIDE
Strength: EQ 2MG BASE
Dosage Form/Route: TABLET;SUBLINGUAL
Application: A090360 | Product #001
Applicant: BARR LABORATORIES INC
Approved: May 7, 2010 | RLD: No | RS: No | Type: DISCN